FAERS Safety Report 14319247 (Version 1)
Quarter: 2017Q4

REPORT INFORMATION
  Report Type: Spontaneous
  Country: US (occurrence: US)
  Receive Date: 20171221
  Receipt Date: 20171221
  Transmission Date: 20180321
  Serious: Yes (Death)
  Sender: FDA-Public Use
  Company Number: None

PATIENT
  Age: 63 Year
  Sex: Male

DRUGS (16)
  1. OMEPRAZOLE. [Concomitant]
     Active Substance: OMEPRAZOLE
  2. LYRICA [Concomitant]
     Active Substance: PREGABALIN
  3. TIZANIDINE. [Concomitant]
     Active Substance: TIZANIDINE
  4. LIDOCAINE. [Concomitant]
     Active Substance: LIDOCAINE
  5. SENSIPAR [Suspect]
     Active Substance: CINACALCET HYDROCHLORIDE
     Indication: HYPERPARATHYROIDISM
     Route: 048
     Dates: start: 20170922, end: 20171215
  6. WARFARIN [Concomitant]
     Active Substance: WARFARIN
  7. RENVELA [Concomitant]
     Active Substance: SEVELAMER CARBONATE
  8. DILT-XR [Concomitant]
     Active Substance: DILTIAZEM
  9. BACTRIM DS [Concomitant]
     Active Substance: SULFAMETHOXAZOLE\TRIMETHOPRIM
  10. PIOGLITAZONE. [Concomitant]
     Active Substance: PIOGLITAZONE
  11. ESOMEPRAZOLE [Concomitant]
     Active Substance: ESOMEPRAZOLE
  12. CARVEDILOL. [Concomitant]
     Active Substance: CARVEDILOL
  13. FENTANYL. [Concomitant]
     Active Substance: FENTANYL
  14. FUROSEMIDE. [Concomitant]
     Active Substance: FUROSEMIDE
  15. NORCO [Concomitant]
     Active Substance: ACETAMINOPHEN\HYDROCODONE BITARTRATE
  16. SIMVASTATIN. [Concomitant]
     Active Substance: SIMVASTATIN

REACTIONS (1)
  - Death [None]

NARRATIVE: CASE EVENT DATE: 20171215
